FAERS Safety Report 11080953 (Version 2)
Quarter: 2015Q3

REPORT INFORMATION
  Report Type: Not Available
  Country: DE (occurrence: DE)
  Receive Date: 20150501
  Receipt Date: 20150723
  Transmission Date: 20151125
  Serious: Yes (Death, Other)
  Sender: FDA-Public Use
  Company Number: DE-CELGENE-062-50794-13044964

PATIENT

DRUGS (3)
  1. VIDAZA [Suspect]
     Active Substance: AZACITIDINE
     Indication: MYELODYSPLASTIC SYNDROME
     Dosage: 75 MILLIGRAM/SQ. METER
     Route: 058
  2. VIDAZA [Suspect]
     Active Substance: AZACITIDINE
     Indication: ACUTE MYELOID LEUKAEMIA
  3. VIDAZA [Suspect]
     Active Substance: AZACITIDINE
     Indication: CHRONIC MYELOMONOCYTIC LEUKAEMIA

REACTIONS (31)
  - Anaemia [Unknown]
  - Vomiting [Unknown]
  - Diverticulitis [Unknown]
  - Night sweats [Unknown]
  - Toxicity to various agents [Unknown]
  - Unevaluable event [Unknown]
  - Neutropenia [Unknown]
  - Weight decreased [Unknown]
  - Acute abdomen [Unknown]
  - Infection [Unknown]
  - General physical health deterioration [Unknown]
  - Skin disorder [Unknown]
  - Alopecia [Unknown]
  - Blood disorder [Unknown]
  - Leukopenia [Unknown]
  - Granulocytopenia [Unknown]
  - Nausea [Unknown]
  - Leukocytosis [Unknown]
  - Pneumonia [Unknown]
  - Weight fluctuation [Unknown]
  - Rash [Unknown]
  - Pyrexia [Unknown]
  - Death [Fatal]
  - Myelodysplastic syndrome [Unknown]
  - Thrombocytopenia [Unknown]
  - Toothache [Unknown]
  - Gastrointestinal disorder [Unknown]
  - Constipation [Unknown]
  - Fatigue [Unknown]
  - Pancytopenia [Unknown]
  - Diarrhoea [Unknown]
